FAERS Safety Report 6047896-8 (Version None)
Quarter: 2009Q1

REPORT INFORMATION
  Report Type: 
  Country: None (occurrence: None)
  Receive Date: 20090123
  Receipt Date: 20090114
  Transmission Date: 20090719
  Serious: Yes (Hospitalization)
  Sender: FDA-Public Use
  Company Number: JP-SP-2007-02500

PATIENT
  Age: 59 Year
  Sex: Male

DRUGS (6)
  1. IMMUCYST [Suspect]
     Indication: BLADDER CANCER
     Route: 043
     Dates: start: 20051026, end: 20070418
  2. TAMSULOSIN HCL [Concomitant]
     Route: 048
     Dates: start: 20050913
  3. CHINESE MEDICINE [Concomitant]
     Dosage: 2 TABS X 2
     Route: 048
     Dates: start: 20050913
  4. TRANEXAMIC ACID [Concomitant]
     Route: 048
     Dates: start: 20051015, end: 20070414
  5. CERNITIN POLLEN EXTRACT [Concomitant]
     Route: 048
     Dates: start: 20070412, end: 20070414
  6. CIPROFLOXACIN HYDROCHLORIDE [Concomitant]
     Route: 048
     Dates: start: 20050921, end: 20070411

REACTIONS (8)
  - BOVINE TUBERCULOSIS [None]
  - GRANULOMATOUS LIVER DISEASE [None]
  - HEPATIC FUNCTION ABNORMAL [None]
  - HEPATIC STEATOSIS [None]
  - HEPATOSPLENOMEGALY [None]
  - JAUNDICE [None]
  - MALAISE [None]
  - PYREXIA [None]
